FAERS Safety Report 8128563-3 (Version None)
Quarter: 2012Q1

REPORT INFORMATION
  Report Type: 
  Country: None (occurrence: None)
  Receive Date: 20120210
  Receipt Date: 20111206
  Transmission Date: 20120608
  Serious: No
  Sender: FDA-Public Use
  Company Number: US-BRISTOL-MYERS SQUIBB COMPANY-16273377

PATIENT
  Age: 51 Year
  Sex: Female

DRUGS (1)
  1. ORENCIA [Suspect]
     Dosage: LAST INF ON 30NOV11

REACTIONS (6)
  - RHINORRHOEA [None]
  - BURNING SENSATION [None]
  - OROPHARYNGEAL PAIN [None]
  - EYE IRRITATION [None]
  - HEADACHE [None]
  - SINUSITIS [None]
